FAERS Safety Report 9483552 (Version 1)
Quarter: 2013Q3

REPORT INFORMATION
  Report Type: Report from Study
  Country: IL (occurrence: IL)
  Receive Date: 20130828
  Receipt Date: 20130828
  Transmission Date: 20140515
  Serious: Yes (Hospitalization)
  Sender: FDA-Public Use
  Company Number: IL-ABBOTT-13P-082-1136567-00

PATIENT
  Age: 36 Year
  Sex: Male
  Weight: 51 kg

DRUGS (4)
  1. HUMIRA [Suspect]
     Indication: CROHN^S DISEASE
     Route: 058
     Dates: start: 20130124
  2. HUMIRA [Suspect]
     Dates: end: 20130725
  3. METOTREXATE [Suspect]
     Indication: CROHN^S DISEASE
  4. CANNABIS [Concomitant]
     Indication: PRODUCT USED FOR UNKNOWN INDICATION
     Route: 055

REACTIONS (4)
  - Infection [Recovered/Resolved]
  - Flatulence [Unknown]
  - Depression [Recovered/Resolved]
  - Abscess intestinal [Recovered/Resolved]
